FAERS Safety Report 22027481 (Version 1)
Quarter: 2023Q1

REPORT INFORMATION
  Report Type: Report from Study
  Country: US (occurrence: US)
  Receive Date: 20230223
  Receipt Date: 20230223
  Transmission Date: 20230417
  Serious: Yes (Death, Hospitalization)
  Sender: FDA-Public Use
  Company Number: US-MYLANLABS-2023M1018936

PATIENT
  Age: 16 Year
  Sex: Male

DRUGS (2)
  1. THIAMINE [Suspect]
     Active Substance: THIAMINE
     Indication: Toxicity to various agents
     Dosage: UNK
     Route: 065
  2. PYRIDOXINE [Suspect]
     Active Substance: PYRIDOXINE
     Indication: Toxicity to various agents
     Dosage: UNK
     Route: 065

REACTIONS (2)
  - Drug ineffective for unapproved indication [Fatal]
  - Off label use [Unknown]
